FAERS Safety Report 24638771 (Version 3)
Quarter: 2025Q2

REPORT INFORMATION
  Report Type: Spontaneous
  Country: US (occurrence: US)
  Receive Date: 20241119
  Receipt Date: 20250428
  Transmission Date: 20250717
  Serious: No
  Sender: MERCK SHARP & DOHME LLC
  Company Number: US-PFIZER INC-PV202400148928

PATIENT
  Age: 61 Year
  Sex: Female

DRUGS (1)
  1. TUKYSA [Suspect]
     Active Substance: TUCATINIB
     Dosage: DOSE DESCRIPTION : 300 MG, 2X/DAY (2 TABLETS OF 150MG TWICE DAILY)?DAILY DOSE : 600 MILLIGRAM; ST...
     Route: 048

REACTIONS (3)
  - Viral upper respiratory tract infection [Unknown]
  - Cough [Unknown]
  - Intentional dose omission [Unknown]
